FAERS Safety Report 8694725 (Version 2)
Quarter: 2013Q4

REPORT INFORMATION
  Report Type: Report from Study
  Country: SE (occurrence: SE)
  Receive Date: 20120731
  Receipt Date: 20131101
  Transmission Date: 20140711
  Serious: Yes (Other)
  Sender: FDA-Public Use
  Company Number: SE-009507513-1105USA00141

PATIENT
  Age: 71 Year
  Sex: Male
  Weight: 80 kg

DRUGS (12)
  1. BLINDED EZETIMIBE (+) SIMVASTATIN [Suspect]
     Indication: ACUTE CORONARY SYNDROME
     Route: 048
     Dates: start: 20080522
  2. BLINDED PLACEBO [Suspect]
     Indication: ACUTE CORONARY SYNDROME
     Route: 048
     Dates: start: 20080522
  3. BLINDED POST TRIAL THERAPY [Suspect]
     Indication: ACUTE CORONARY SYNDROME
     Route: 048
     Dates: start: 20080522
  4. BLINDED PRE TRIAL THERAPY [Suspect]
     Indication: ACUTE CORONARY SYNDROME
     Route: 048
     Dates: start: 20080522
  5. BLINDED SIMVASTATIN [Suspect]
     Indication: ACUTE CORONARY SYNDROME
     Route: 048
     Dates: start: 20080522
  6. SIMVASTATIN [Concomitant]
     Route: 048
     Dates: start: 20100521
  7. COZAAR [Suspect]
     Route: 048
     Dates: start: 20081124
  8. TROMBYL [Concomitant]
     Route: 048
     Dates: start: 20080519
  9. BISOPROLOL [Concomitant]
     Route: 048
     Dates: start: 20080522
  10. OMEPRAZOLE [Concomitant]
     Dosage: UNK UNK, PRN
     Route: 048
     Dates: start: 20100521
  11. BLINDED THERAPY [Suspect]
     Indication: ACUTE CORONARY SYNDROME
     Dosage: UNK
     Route: 048
     Dates: start: 20080522
  12. PLACEBO [Suspect]
     Indication: ACUTE CORONARY SYNDROME
     Dosage: UNK
     Route: 048
     Dates: start: 20080522

REACTIONS (1)
  - Basal cell carcinoma [Recovered/Resolved]
